FAERS Safety Report 19784742 (Version 1)
Quarter: 2021Q3

REPORT INFORMATION
  Report Type: Spontaneous
  Country: CN (occurrence: CN)
  Receive Date: 20210903
  Receipt Date: 20210903
  Transmission Date: 20211014
  Serious: Yes (Other)
  Sender: FDA-Public Use
  Company Number: CN-009507513-2108CHN006942

PATIENT
  Age: 91 Year
  Sex: Male

DRUGS (2)
  1. TIENAM [Suspect]
     Active Substance: CILASTATIN SODIUM\IMIPENEM
     Indication: ANTI-INFECTIVE THERAPY
     Dosage: 1 BOTTLE, FOUR TIMES A DAY
     Route: 041
     Dates: start: 20210619, end: 20210621
  2. TIENAM [Suspect]
     Active Substance: CILASTATIN SODIUM\IMIPENEM
     Dosage: 1 BOTTLE, THREE TIMES A DAY
     Route: 041
     Dates: start: 20210621, end: 20210628

REACTIONS (2)
  - Respiratory tract infection fungal [Recovering/Resolving]
  - Superinfection fungal [Recovering/Resolving]

NARRATIVE: CASE EVENT DATE: 20210626
